FAERS Safety Report 16647699 (Version 1)
Quarter: 2019Q3

REPORT INFORMATION
  Report Type: Spontaneous
  Country: US (occurrence: US)
  Receive Date: 20190729
  Receipt Date: 20190729
  Transmission Date: 20191004
  Serious: Yes (Life-Threatening, Disabling, Other)
  Sender: FDA-Public Use
  Company Number: None

PATIENT
  Age: 51 Year
  Sex: Male
  Weight: 121.5 kg

DRUGS (8)
  1. OMEPRAZOLE 1 PO QD [Concomitant]
  2. TESTOSTERONE IM (INTERMITTENTLY) [Concomitant]
     Dates: end: 20190131
  3. TYMLOS [Suspect]
     Active Substance: ABALOPARATIDE
     Indication: BONE DISORDER
     Route: 058
     Dates: start: 20190201, end: 20190515
  4. PROZAC 10MG 1 PO QD [Concomitant]
  5. WELBUTRIN 150 ER 1 PO QD [Concomitant]
  6. BYSTOLIC 20MG 1PO QD [Concomitant]
  7. SUBOXONE (CHRONIC PAIN) [Concomitant]
     Dates: start: 20180801, end: 20190701
  8. GABAPENTIN 900MG TID [Concomitant]

REACTIONS (5)
  - Post procedural complication [None]
  - Oral disorder [None]
  - Osteonecrosis of jaw [None]
  - Pain in jaw [None]
  - Toothache [None]

NARRATIVE: CASE EVENT DATE: 20190515
